FAERS Safety Report 10503708 (Version 1)
Quarter: 2014Q4

REPORT INFORMATION
  Report Type: Spontaneous
  Country: US (occurrence: None)
  Receive Date: 20141007
  Receipt Date: 20141007
  Transmission Date: 20150528
  Serious: Yes (Hospitalization)
  Sender: FDA-Public Use
  Company Number: None

PATIENT
  Age: 58 Year
  Sex: Male
  Weight: 75.9 kg

DRUGS (1)
  1. CEPHALEXIN. [Suspect]
     Active Substance: CEPHALEXIN
     Indication: SKIN LESION
     Route: 048
     Dates: start: 20130725, end: 20130730

REACTIONS (2)
  - Tubulointerstitial nephritis [None]
  - Erythema [None]

NARRATIVE: CASE EVENT DATE: 20130730
